FAERS Safety Report 9116566 (Version 2)
Quarter: 2013Q1

REPORT INFORMATION
  Report Type: Spontaneous
  Country: US (occurrence: US)
  Receive Date: 20130225
  Receipt Date: 20130318
  Transmission Date: 20140127
  Serious: Yes (Death, Other)
  Sender: FDA-Public Use
  Company Number: US-B.I. PHARMACEUTICALS,INC./RIDGEFIELD-2013-BI-04739BP

PATIENT
  Sex: Female
  Weight: 99.79 kg

DRUGS (2)
  1. SPIRIVA [Suspect]
     Indication: CHRONIC OBSTRUCTIVE PULMONARY DISEASE
     Dosage: 18 MCG
     Route: 055
     Dates: start: 2010
  2. ADVAIR [Concomitant]
     Route: 055

REACTIONS (6)
  - Death [Fatal]
  - Respiratory failure [Unknown]
  - Hypercapnia [Unknown]
  - Fall [Unknown]
  - Contusion [Unknown]
  - Pharyngeal fistula [Unknown]
